FAERS Safety Report 8595090-9 (Version None)
Quarter: 2012Q3

REPORT INFORMATION
  Report Type: 
  Country: None (occurrence: None)
  Receive Date: 20120815
  Receipt Date: 20120808
  Transmission Date: 20120928
  Serious: Yes (Death)
  Sender: FDA-Public Use
  Company Number: ZA-NOVOPROD-357694

PATIENT
  Sex: Female

DRUGS (1)
  1. NOVOMIX 30 FLEXPEN [Suspect]
     Indication: PRODUCT USED FOR UNKNOWN INDICATION
     Dosage: UNK
     Route: 065

REACTIONS (1)
  - DEATH [None]
